FAERS Safety Report 5760453-3 (Version None)
Quarter: 2008Q2

REPORT INFORMATION
  Report Type: 
  Country: None (occurrence: None)
  Receive Date: 20080605
  Receipt Date: 20080526
  Transmission Date: 20081010
  Serious: Yes (Other)
  Sender: FDA-Public Use
  Company Number: BR-PFIZER INC-2008045318

PATIENT
  Sex: Female
  Weight: 70 kg

DRUGS (3)
  1. DEPO-PROVERA SUSPENSION/INJ [Suspect]
     Indication: CONTRACEPTION
     Route: 030
     Dates: start: 20080416, end: 20080416
  2. AZITHROMYCIN [Concomitant]
  3. RIVOTRIL [Concomitant]

REACTIONS (6)
  - AMENORRHOEA [None]
  - ANAEMIA [None]
  - HEADACHE [None]
  - PNEUMONIA [None]
  - PYREXIA [None]
  - SYNCOPE [None]
